FAERS Safety Report 12159737 (Version 1)
Quarter: 2016Q1

REPORT INFORMATION
  Report Type: Spontaneous
  Country: ES (occurrence: ES)
  Receive Date: 20160308
  Receipt Date: 20160308
  Transmission Date: 20160526
  Serious: Yes (Other)
  Sender: FDA-Public Use
  Company Number: PHHY2016ES029253

PATIENT
  Sex: Female

DRUGS (1)
  1. OMEPRAZOLE SANDOZ [Suspect]
     Active Substance: OMEPRAZOLE
     Indication: HIATUS HERNIA
     Dosage: 20 MG, UNK
     Route: 048

REACTIONS (3)
  - Chest pain [Unknown]
  - Arrhythmia [Unknown]
  - Malaise [Unknown]
